FAERS Safety Report 15882007 (Version 2)
Quarter: 2021Q2

REPORT INFORMATION
  Report Type: Spontaneous
  Country: US (occurrence: US)
  Receive Date: 20190128
  Receipt Date: 20210625
  Transmission Date: 20210716
  Serious: Yes (Hospitalization)
  Sender: FDA-Public Use
  Company Number: US-JNJFOC-20190133302

PATIENT
  Age: 60 Year
  Sex: Female
  Weight: 46.31 kg

DRUGS (1)
  1. ELMIRON [Suspect]
     Active Substance: PENTOSAN POLYSULFATE SODIUM
     Indication: CYSTITIS INTERSTITIAL
     Route: 048
     Dates: start: 200409, end: 20180901

REACTIONS (1)
  - Maculopathy [Not Recovered/Not Resolved]

NARRATIVE: CASE EVENT DATE: 201809
